FAERS Safety Report 12766222 (Version 2)
Quarter: 2016Q3

REPORT INFORMATION
  Report Type: Spontaneous
  Country: US (occurrence: US)
  Receive Date: 20160921
  Receipt Date: 20160927
  Transmission Date: 20161109
  Serious: No
  Sender: FDA-Public Use
  Company Number: US-GLAXOSMITHKLINE-US2016GSK136753

PATIENT
  Age: 74 Year
  Sex: Female

DRUGS (1)
  1. ANORO ELLIPTA [Suspect]
     Active Substance: UMECLIDINIUM BROMIDE\VILANTEROL TRIFENATATE
     Indication: PRODUCT USED FOR UNKNOWN INDICATION
     Dosage: 62.5/25 MCG, 1 PUFF(S), QD
     Route: 055

REACTIONS (8)
  - Dyspnoea [Unknown]
  - Headache [Unknown]
  - Palpitations [Unknown]
  - Cough [Unknown]
  - Chest discomfort [Unknown]
  - Nausea [Unknown]
  - Anxiety [Unknown]
  - Nervousness [Unknown]

NARRATIVE: CASE EVENT DATE: 20160916
